FAERS Safety Report 18197577 (Version 5)
Quarter: 2021Q2

REPORT INFORMATION
  Report Type: Spontaneous
  Country: GB (occurrence: GB)
  Receive Date: 20200826
  Receipt Date: 20210421
  Transmission Date: 20210717
  Serious: Yes (Hospitalization, Other)
  Sender: FDA-Public Use
  Company Number: GB-ADVANZ PHARMA-202008008180

PATIENT

DRUGS (14)
  1. BLEO FOR INJ. 5MG (BLEOMYCIN HYDROCHLORIDE) INJECTION [Suspect]
     Active Substance: BLEOMYCIN HYDROCHLORIDE
     Indication: HODGKIN^S DISEASE
     Dosage: 5 MG INJECTION, CYCLICAL
     Route: 041
  2. PROCARBAZINE (PROCARBAZINE HYDROCHLORIDE) [Suspect]
     Active Substance: PROCARBAZINE HYDROCHLORIDE
     Indication: HODGKIN^S DISEASE
     Dosage: UNK
     Route: 065
  3. EXAL FOR INJ. 10MG (VINBLASTINES ULFATE) INJECTION; [Suspect]
     Active Substance: VINBLASTINE SULFATE
     Indication: HODGKIN^S DISEASE
     Dosage: STRENGTH: 10 MG
     Route: 040
  4. VINCRISTINE [Suspect]
     Active Substance: VINCRISTINE
     Indication: HODGKIN^S DISEASE
  5. VINBLASTINE [Suspect]
     Active Substance: VINBLASTINE
     Indication: HODGKIN^S DISEASE
  6. DACARBAZINE (DACARBAZINE CITRATE) INJECTION; [Suspect]
     Active Substance: DACARBAZINE CITRATE
     Indication: HODGKIN^S DISEASE
     Dosage: INJECTION
     Route: 041
  7. ONCOVIN [Suspect]
     Active Substance: VINCRISTINE SULFATE
     Indication: HODGKIN^S DISEASE
     Dosage: 1 MG STRENGTH INJECTION
     Route: 042
  8. COTRIMOXAZOLE [Concomitant]
     Active Substance: SULFAMETHOXAZOLE\TRIMETHOPRIM
     Indication: ANTIVIRAL PROPHYLAXIS
     Dosage: UNK
     Route: 065
  9. DOXORUBICIN HYDROCHLORIDE FOR INJECTION 50MG [Suspect]
     Active Substance: DOXORUBICIN HYDROCHLORIDE
     Indication: HODGKIN^S DISEASE
     Dosage: UNK, CYCLICAL
     Route: 041
  10. COTRIMOXAZOLE [Concomitant]
     Active Substance: SULFAMETHOXAZOLE\TRIMETHOPRIM
     Dosage: UNK
     Route: 065
  11. CHLORAMBUCIL [Suspect]
     Active Substance: CHLORAMBUCIL
     Indication: HODGKIN^S DISEASE
     Dosage: UNK
  12. LASTET INJ. 100MG/5ML (ETOPOSIDE) INJECTION [Suspect]
     Active Substance: ETOPOSIDE
     Indication: HODGKIN^S DISEASE
     Dosage: STRENGTH: 100MG/5ML
     Route: 065
  13. ACYCLOVIR ACTAVIS [Concomitant]
     Active Substance: ACYCLOVIR
     Indication: ANTIVIRAL PROPHYLAXIS
     Dosage: UNK
  14. PREDNISOLONE. [Suspect]
     Active Substance: PREDNISOLONE
     Indication: HODGKIN^S DISEASE

REACTIONS (6)
  - Lymphopenia [Recovered/Resolved]
  - Posterior reversible encephalopathy syndrome [Recovered/Resolved]
  - Off label use [Unknown]
  - Cytopenia [Unknown]
  - Herpes zoster meningoencephalitis [Recovered/Resolved]
  - Febrile neutropenia [Unknown]
